FAERS Safety Report 5691041-5 (Version None)
Quarter: 2008Q2

REPORT INFORMATION
  Report Type: 
  Country: None (occurrence: None)
  Receive Date: 20080401
  Receipt Date: 20080320
  Transmission Date: 20081010
  Serious: Yes (Other)
  Sender: FDA-Public Use
  Company Number: DE-PFIZER INC-2008017472

PATIENT
  Sex: Female
  Weight: 65 kg

DRUGS (6)
  1. LYRICA [Suspect]
     Indication: HERPES ZOSTER
     Route: 048
     Dates: start: 20080204, end: 20080222
  2. LYRICA [Suspect]
     Indication: INFLAMMATION
  3. REMIFEMIN [Suspect]
     Indication: MENOPAUSAL SYMPTOMS
     Route: 048
  4. ALL OTHER THERAPEUTIC PRODUCTS [Concomitant]
  5. VIRZIN [Concomitant]
     Route: 048
  6. CITALOPRAM [Concomitant]
     Route: 048

REACTIONS (3)
  - PRURITUS [None]
  - RASH ERYTHEMATOUS [None]
  - RASH PUSTULAR [None]
